FAERS Safety Report 5320586-2 (Version None)
Quarter: 2007Q2

REPORT INFORMATION
  Report Type: 
  Country: None (occurrence: None)
  Receive Date: 20070509
  Receipt Date: 20070502
  Transmission Date: 20071010
  Serious: Yes (Congenital Anomaly, Other)
  Sender: FDA-Public Use
  Company Number: DE-PFIZER INC-2006110817

PATIENT
  Sex: Male

DRUGS (1)
  1. ZIPRASIDONE [Suspect]
     Route: 064
     Dates: start: 20060101, end: 20070209

REACTIONS (2)
  - DRUG EXPOSURE DURING PREGNANCY [None]
  - KIDNEY ENLARGEMENT [None]
